FAERS Safety Report 5036777-4 (Version None)
Quarter: 2006Q2

REPORT INFORMATION
  Report Type: 
  Country: None (occurrence: None)
  Receive Date: 20060622
  Receipt Date: 20060609
  Transmission Date: 20061013
  Serious: Yes (Hospitalization)
  Sender: FDA-Public Use
  Company Number: 226185

PATIENT
  Age: 35 Year
  Sex: Female

DRUGS (3)
  1. AVASTIN [Suspect]
     Indication: LYMPHOMA
     Dosage: 541 MG INTRAVENOUS
     Route: 042
     Dates: start: 20060503
  2. . [Concomitant]
  3. RITUXIMAB (RITUXIMAB) CONC FOR SOLUTION FOR INFUSION [Suspect]
     Indication: LYMPHOMA

REACTIONS (2)
  - PNEUMONIA [None]
  - VOMITING [None]
